FAERS Safety Report 8831505 (Version 1)
Quarter: 2012Q4

REPORT INFORMATION
  Report Type: 
  Country: US (occurrence: US)
  Receive Date: 20121009
  Receipt Date: 20121009
  Transmission Date: 20130627
  Serious: Yes (Life-Threatening, Hospitalization, Other)
  Sender: FDA-Public Use
  Company Number: US-ASTRAZENECA-2012SE76873

PATIENT
  Age: 56 Year
  Sex: Female
  Weight: 118.8 kg

DRUGS (11)
  1. LISINOPRIL [Suspect]
     Indication: BLOOD PRESSURE ABNORMAL
     Route: 048
  2. SEROQUEL XR [Suspect]
     Indication: DEPRESSION
     Route: 048
     Dates: start: 2004
  3. WARFARIN [Concomitant]
     Indication: THROMBOSIS
     Route: 048
     Dates: start: 201207
  4. KLONOPIN [Concomitant]
     Indication: DEPRESSION
     Route: 048
  5. AMBIEN [Concomitant]
     Indication: SLEEP DISORDER
     Route: 048
  6. FUROSEMIDE [Concomitant]
     Indication: BLOOD PRESSURE ABNORMAL
     Route: 048
  7. CYCLOBENZAPRINE [Concomitant]
     Indication: PAIN
     Route: 048
  8. CITALOPRAM HBR [Concomitant]
     Indication: SLEEP DISORDER
     Route: 048
  9. SIMVASTATIN [Concomitant]
     Indication: BLOOD CHOLESTEROL ABNORMAL
     Route: 048
  10. PERCOCET [Concomitant]
     Indication: PAIN
     Route: 048
  11. OXYCONTIN [Concomitant]
     Indication: PAIN
     Route: 048

REACTIONS (7)
  - Loss of consciousness [Recovered/Resolved]
  - Deep vein thrombosis [Recovering/Resolving]
  - Road traffic accident [Unknown]
  - Multiple injuries [Unknown]
  - Fracture delayed union [Unknown]
  - Diarrhoea [Recovered/Resolved]
  - Musculoskeletal discomfort [Unknown]
